FAERS Safety Report 8924595 (Version 1)
Quarter: 2012Q4

REPORT INFORMATION
  Report Type: 
  Country: PR (occurrence: PR)
  Receive Date: 20121126
  Receipt Date: 20121126
  Transmission Date: 20130627
  Serious: No
  Sender: FDA-Public Use
  Company Number: PR-BRISTOL-MYERS SQUIBB COMPANY-16856296

PATIENT

DRUGS (1)
  1. KOMBIGLYZE XR [Suspect]

REACTIONS (2)
  - Gait disturbance [Unknown]
  - Sensation of heaviness [Unknown]
